FAERS Safety Report 22905823 (Version 3)
Quarter: 2023Q4

REPORT INFORMATION
  Report Type: Spontaneous
  Country: PT (occurrence: PT)
  Receive Date: 20230905
  Receipt Date: 20231011
  Transmission Date: 20240110
  Serious: Yes (Hospitalization)
  Sender: FDA-Public Use
  Company Number: None

PATIENT
  Age: 40 Year
  Sex: Female

DRUGS (3)
  1. DOXORUBICIN [Suspect]
     Active Substance: DOXORUBICIN
     Indication: Invasive breast carcinoma
     Dosage: 1ST CYCLE (3 IN TOTAL), CYCLIC, NEOADJUVANT CHEMOTHERAPY
     Route: 065
  2. TRASTUZUMAB [Suspect]
     Active Substance: TRASTUZUMAB
     Indication: Invasive breast carcinoma
     Dosage: 1ST CYCLE (3 IN TOTAL), CYCLIC, NEOADJUVANT CHEMOTHERAPY
     Route: 065
  3. PERTUZUMAB [Suspect]
     Active Substance: PERTUZUMAB
     Indication: Invasive breast carcinoma
     Dosage: 1ST CYCLE (3 IN TOTAL), CYCLIC, NEOADJUVANT CHEMOTHERAPY
     Route: 065

REACTIONS (6)
  - Toxicity to various agents [Unknown]
  - Cardiac disorder [Unknown]
  - Ventricular dysfunction [Unknown]
  - Cough [Unknown]
  - Dyspnoea exertional [Unknown]
  - Orthopnoea [Unknown]
